FAERS Safety Report 17199513 (Version 2)
Quarter: 2021Q1

REPORT INFORMATION
  Report Type: Other
  Country: US (occurrence: US)
  Receive Date: 20191226
  Receipt Date: 20210329
  Transmission Date: 20210419
  Serious: Yes (Other)
  Sender: FDA-Public Use
  Company Number: US-ROCHE-2500915

PATIENT
  Sex: Female

DRUGS (20)
  1. ANORO [Concomitant]
     Active Substance: UMECLIDINIUM BROMIDE\VILANTEROL TRIFENATATE
     Dates: start: 2020
  2. VILANTEROL [Concomitant]
     Active Substance: VILANTEROL TRIFENATATE
  3. OCREVUS [Suspect]
     Active Substance: OCRELIZUMAB
     Indication: PRIMARY PROGRESSIVE MULTIPLE SCLEROSIS
     Route: 065
     Dates: start: 20191028
  4. ATORVASTATIN [Concomitant]
     Active Substance: ATORVASTATIN
     Dates: start: 2020
  5. ARNICA [Concomitant]
     Active Substance: ARNICA MONTANA FLOWER
     Indication: ARTHRALGIA
     Dates: start: 2010
  6. AUBAGIO [Concomitant]
     Active Substance: TERIFLUNOMIDE
     Route: 048
     Dates: start: 2017
  7. AUBAGIO [Concomitant]
     Active Substance: TERIFLUNOMIDE
     Route: 048
     Dates: start: 20180411, end: 20191007
  8. CORTISONE [Concomitant]
     Active Substance: CORTISONE
  9. DICLOFENAC SODIUM. [Concomitant]
     Active Substance: DICLOFENAC SODIUM
     Indication: PAIN
  10. BOTOX [Concomitant]
     Active Substance: ONABOTULINUMTOXINA
     Indication: INCONTINENCE
  11. SUCRALFATE. [Concomitant]
     Active Substance: SUCRALFATE
     Indication: HIATUS HERNIA
  12. UMECLIDINIUM [Concomitant]
     Active Substance: UMECLIDINIUM BROMIDE
  13. AUBAGIO [Concomitant]
     Active Substance: TERIFLUNOMIDE
     Indication: MULTIPLE SCLEROSIS
     Route: 048
     Dates: start: 20160208, end: 2016
  14. KLONOPIN [Concomitant]
     Active Substance: CLONAZEPAM
     Indication: AGITATION
  15. OCREVUS [Suspect]
     Active Substance: OCRELIZUMAB
     Indication: MULTIPLE SCLEROSIS
     Route: 065
     Dates: start: 201910, end: 201912
  16. AUBAGIO [Concomitant]
     Active Substance: TERIFLUNOMIDE
     Route: 048
     Dates: start: 20201110
  17. CIPRO [Concomitant]
     Active Substance: CIPROFLOXACIN HYDROCHLORIDE
     Indication: URINARY TRACT INFECTION
  18. SUCRALFATE. [Concomitant]
     Active Substance: SUCRALFATE
     Indication: IRON DEFICIENCY
  19. CEFUROXIME. [Concomitant]
     Active Substance: CEFUROXIME
     Indication: URINARY TRACT INFECTION
  20. ALEVE [Concomitant]
     Active Substance: NAPROXEN SODIUM
     Indication: MUSCULOSKELETAL STIFFNESS

REACTIONS (11)
  - Influenza like illness [Unknown]
  - Respiratory tract infection [Not Recovered/Not Resolved]
  - Arthralgia [Unknown]
  - Balance disorder [Unknown]
  - Memory impairment [Unknown]
  - Asthenia [Unknown]
  - Somnolence [Unknown]
  - Asthenia [Not Recovered/Not Resolved]
  - Pain [Not Recovered/Not Resolved]
  - Gait disturbance [Unknown]
  - Nausea [Unknown]
